FAERS Safety Report 23384050 (Version 2)
Quarter: 2024Q1

REPORT INFORMATION
  Report Type: Spontaneous
  Country: US (occurrence: US)
  Receive Date: 20240109
  Receipt Date: 20240109
  Transmission Date: 20240410
  Serious: No
  Sender: FDA-Public Use
  Company Number: US-PFIZER INC-202300457218

PATIENT
  Age: 52 Year
  Sex: Female
  Weight: 56.7 kg

DRUGS (3)
  1. CYTOMEL [Suspect]
     Active Substance: LIOTHYRONINE SODIUM
     Indication: Blood thyroid stimulating hormone increased
     Dosage: 5 UG, 2X/DAY
     Route: 048
     Dates: start: 20231018
  2. CYTOMEL [Suspect]
     Active Substance: LIOTHYRONINE SODIUM
     Indication: Hypothyroidism
     Dosage: 5 UG, 1X/DAY
     Route: 048
     Dates: start: 202312
  3. CYTOMEL [Suspect]
     Active Substance: LIOTHYRONINE SODIUM
     Dosage: 2.5 (MCG) BID AS OF ONE WEEK

REACTIONS (2)
  - Off label use [Unknown]
  - Serum ferritin increased [Unknown]

NARRATIVE: CASE EVENT DATE: 20231018
